FAERS Safety Report 7031076-3 (Version None)
Quarter: 2010Q4

REPORT INFORMATION
  Report Type: 
  Country: None (occurrence: None)
  Receive Date: 20101006
  Receipt Date: 20100929
  Transmission Date: 20110411
  Serious: Yes (Hospitalization)
  Sender: FDA-Public Use
  Company Number: US-GILEAD-2010-0031784

PATIENT
  Sex: Female
  Weight: 133.48 kg

DRUGS (20)
  1. LETAIRIS [Suspect]
     Indication: PULMONARY ARTERIAL HYPERTENSION
     Route: 048
     Dates: start: 20100821, end: 20100821
  2. REVATIO [Concomitant]
  3. LASIX [Concomitant]
  4. ALDACTONE [Concomitant]
  5. PRINIVIL [Concomitant]
  6. NITROGLYCERIN [Concomitant]
  7. CYMBALTA [Concomitant]
  8. SINGULAIR [Concomitant]
  9. MICRO-K [Concomitant]
  10. ROBAXIN [Concomitant]
  11. ALBUTEROL [Concomitant]
  12. LORATADINE [Concomitant]
  13. LOVASTATIN [Concomitant]
  14. MORPHINE SULFATE [Concomitant]
  15. ADVAIR DISKUS 100/50 [Concomitant]
  16. VICODIN [Concomitant]
  17. BYSTOLIC [Concomitant]
  18. IRON [Concomitant]
  19. ASPIRIN [Concomitant]
  20. XOPENEX [Concomitant]

REACTIONS (1)
  - RENAL FAILURE [None]
